FAERS Safety Report 4826384-8 (Version None)
Quarter: 2005Q4

REPORT INFORMATION
  Report Type: 
  Country: None (occurrence: None)
  Receive Date: 20051111
  Receipt Date: 20051101
  Transmission Date: 20060501
  Serious: Yes (Hospitalization)
  Sender: FDA-Public Use
  Company Number: GB-AVENTIS-200514168EU

PATIENT
  Age: 62 Year
  Sex: Male

DRUGS (11)
  1. FUROSEMIDE [Suspect]
     Indication: CARDIAC FAILURE
     Route: 048
     Dates: start: 20050920, end: 20051017
  2. SPIRONOLACTONE [Suspect]
     Indication: CARDIAC FAILURE
     Route: 048
     Dates: start: 20050927, end: 20051011
  3. SALBUTAMOL [Concomitant]
     Indication: IDIOPATHIC PULMONARY FIBROSIS
     Route: 055
  4. ATROVENT [Concomitant]
     Indication: IDIOPATHIC PULMONARY FIBROSIS
     Dosage: DOSE: 2 PUFFS
     Route: 055
  5. BECLOMETHASONE DIPROPIONATE [Concomitant]
     Indication: IDIOPATHIC PULMONARY FIBROSIS
     Dosage: DOSE: 2 PUFFS
     Route: 055
  6. VITAMIN B COMPLEX CAP [Concomitant]
     Indication: ALCOHOLIC LIVER DISEASE
     Route: 048
  7. FOSAMAX ONCE WEEKLY [Concomitant]
     Indication: DRUG USE FOR UNKNOWN INDICATION
     Route: 048
  8. CALCICHEW D3 [Concomitant]
     Indication: DRUG USE FOR UNKNOWN INDICATION
     Route: 048
  9. PREDNISOLONE [Concomitant]
     Indication: IDIOPATHIC PULMONARY FIBROSIS
     Route: 048
     Dates: start: 20051010
  10. THIAMINE [Concomitant]
     Indication: ALCOHOLIC LIVER DISEASE
     Route: 048
  11. OMEPRAZOLE [Concomitant]
     Indication: DRUG USE FOR UNKNOWN INDICATION
     Route: 048

REACTIONS (4)
  - DYSPNOEA [None]
  - LETHARGY [None]
  - PURPURA [None]
  - VASCULITIC RASH [None]
